FAERS Safety Report 19967742 (Version 1)
Quarter: 2021Q4

REPORT INFORMATION
  Report Type: Spontaneous
  Country: US (occurrence: US)
  Receive Date: 20211018
  Receipt Date: 20211018
  Transmission Date: 20220303
  Serious: No
  Sender: FDA-Public Use
  Company Number: None

PATIENT
  Age: 45 Year
  Sex: Male
  Weight: 74.25 kg

DRUGS (3)
  1. ROCKLATAN [Suspect]
     Active Substance: LATANOPROST\NETARSUDIL MESYLATE
     Indication: Pigmentary glaucoma
     Dosage: ?          QUANTITY:1 DROP(S);
     Route: 047
     Dates: start: 20210901, end: 20211018
  2. FLONASE [Concomitant]
     Active Substance: FLUTICASONE PROPIONATE
  3. ALLEGRA [Concomitant]
     Active Substance: FEXOFENADINE HYDROCHLORIDE

REACTIONS (2)
  - Conjunctival hyperaemia [None]
  - Conjunctival haemorrhage [None]

NARRATIVE: CASE EVENT DATE: 20211015
